FAERS Safety Report 20138966 (Version 2)
Quarter: 2021Q4

REPORT INFORMATION
  Report Type: Report from Study
  Country: US (occurrence: US)
  Receive Date: 20211202
  Receipt Date: 20211221
  Transmission Date: 20220303
  Serious: Yes (Hospitalization)
  Sender: FDA-Public Use
  Company Number: US-TAKEDA-2019TUS056855

PATIENT
  Age: 60 Year
  Sex: Female
  Weight: 77 kg

DRUGS (21)
  1. MOBOCERTINIB [Suspect]
     Active Substance: MOBOCERTINIB
     Indication: Lung adenocarcinoma stage IV
     Dosage: 160 MILLIGRAM, QD
     Route: 065
     Dates: start: 20180712
  2. VITAMIN B6 [Concomitant]
     Active Substance: PYRIDOXINE HYDROCHLORIDE
     Indication: Vitamin supplementation
     Dosage: UNK
     Route: 048
  3. FOLIC ACID [Concomitant]
     Active Substance: FOLIC ACID
     Indication: Vitamin supplementation
     Dosage: UNK
     Route: 048
  4. PANTOPRAZOLE [Concomitant]
     Active Substance: PANTOPRAZOLE
     Indication: Gastrooesophageal reflux disease
     Dosage: UNK
     Route: 048
     Dates: start: 2016
  5. VITAMIN B12 [Concomitant]
     Active Substance: CYANOCOBALAMIN
     Indication: Vitamin supplementation
     Dosage: UNK
     Route: 048
  6. ACETAMINOPHEN [Concomitant]
     Active Substance: ACETAMINOPHEN
     Indication: Pain
     Dosage: UNK
     Route: 048
  7. MAGNESIUM [Concomitant]
     Active Substance: MAGNESIUM
     Indication: Hypomagnesaemia
     Dosage: UNK
     Route: 048
     Dates: start: 20180712
  8. PROCHLORPERAZINE [Concomitant]
     Active Substance: PROCHLORPERAZINE
     Indication: Nausea
     Dosage: UNK
     Route: 048
     Dates: start: 20180723
  9. LOMOTIL [Concomitant]
     Active Substance: ATROPINE SULFATE\DIPHENOXYLATE HYDROCHLORIDE
     Indication: Diarrhoea
     Dosage: UNK
     Route: 048
     Dates: start: 20180703
  10. TROPICAMIDE [Concomitant]
     Active Substance: TROPICAMIDE
     Indication: Open angle glaucoma
     Dosage: UNK
     Route: 047
     Dates: start: 20180825
  11. CYCLOPENTOLATE [Concomitant]
     Active Substance: CYCLOPENTOLATE
     Indication: Open angle glaucoma
     Dosage: UNK
     Route: 047
     Dates: start: 20180827
  12. HYDROCORTISONE [Concomitant]
     Active Substance: HYDROCORTISONE
     Indication: Cellulitis
     Dosage: UNK
     Route: 061
     Dates: start: 20181004
  13. HYDROCORTISONE [Concomitant]
     Active Substance: HYDROCORTISONE
     Indication: Abscess
  14. HYDROCORTISONE [Concomitant]
     Active Substance: HYDROCORTISONE
     Indication: Rash
  15. DIPHENHYDRAMINE [Concomitant]
     Active Substance: DIPHENHYDRAMINE
     Indication: Contrast media allergy
     Dosage: UNK
     Route: 048
  16. PREDNISONE [Concomitant]
     Active Substance: PREDNISONE
     Indication: Contrast media allergy
     Dosage: UNK
     Route: 048
  17. AUGMENTIN [Concomitant]
     Active Substance: AMOXICILLIN\CLAVULANATE POTASSIUM
     Indication: Rash
     Dosage: UNK
     Route: 048
     Dates: start: 20190314
  18. MUPIROCIN [Concomitant]
     Active Substance: MUPIROCIN
     Indication: Rash
     Dosage: UNK
     Route: 062
     Dates: start: 20190314
  19. NYSTATIN [Concomitant]
     Active Substance: NYSTATIN
     Indication: Rash
     Dosage: UNK
     Route: 062
     Dates: start: 20190314
  20. DECADRON [Concomitant]
     Active Substance: DEXAMETHASONE
     Indication: Headache
     Dosage: UNK
     Route: 048
     Dates: start: 20190904
  21. DECADRON [Concomitant]
     Active Substance: DEXAMETHASONE
     Indication: Dizziness

REACTIONS (2)
  - Cellulitis [Recovered/Resolved with Sequelae]
  - Muscular weakness [Recovered/Resolved]

NARRATIVE: CASE EVENT DATE: 20191010
